FAERS Safety Report 17017030 (Version 1)
Quarter: 2019Q4

REPORT INFORMATION
  Report Type: Spontaneous
  Country: CN (occurrence: CN)
  Receive Date: 20191111
  Receipt Date: 20191111
  Transmission Date: 20200122
  Serious: Yes (Hospitalization)
  Sender: FDA-Public Use
  Company Number: CN-PFIZER INC-2019480845

PATIENT
  Age: 67 Year
  Sex: Male

DRUGS (3)
  1. JIE BAI SHU [Suspect]
     Active Substance: NEDAPLATIN
     Indication: NEOPLASM MALIGNANT
     Dosage: 120 MG, 1X/DAY
     Route: 041
     Dates: start: 20190915, end: 20190915
  2. SODIUM CHLORIDE. [Concomitant]
     Active Substance: SODIUM CHLORIDE
     Indication: VEHICLE SOLUTION USE
     Dosage: 500 ML, 1X/DAY
     Route: 041
     Dates: start: 20190915, end: 20190915
  3. ANZATAX (PACLITAXEL) [Suspect]
     Active Substance: PACLITAXEL
     Indication: NEOPLASM MALIGNANT
     Dosage: 210 MG, 1X/DAY
     Route: 041
     Dates: start: 20190915, end: 20190915

REACTIONS (1)
  - Bone marrow failure [Recovering/Resolving]

NARRATIVE: CASE EVENT DATE: 20191008
